FAERS Safety Report 22993357 (Version 2)
Quarter: 2023Q4

REPORT INFORMATION
  Report Type: Spontaneous
  Country: US (occurrence: US)
  Receive Date: 20230927
  Receipt Date: 20231107
  Transmission Date: 20240110
  Serious: No
  Sender: FDA-Public Use
  Company Number: US-OPELLA-2023OHG008000

PATIENT
  Age: 91 Year
  Sex: Female
  Weight: 58.06 kg

DRUGS (1)
  1. ICY HOT WITH LIDOCAINE NO-MESS [Suspect]
     Active Substance: LIDOCAINE\MENTHOL
     Indication: Drug ineffective
     Route: 065

REACTIONS (2)
  - Drug ineffective [Unknown]
  - No adverse event [Unknown]
